FAERS Safety Report 9119061 (Version 2)
Quarter: 2013Q1

REPORT INFORMATION
  Report Type: Spontaneous
  Country: US (occurrence: US)
  Receive Date: 20130226
  Receipt Date: 20130318
  Transmission Date: 20140127
  Serious: Yes (Hospitalization, Other)
  Sender: FDA-Public Use
  Company Number: PHEH2013US004546

PATIENT
  Age: 57 Year
  Sex: Male

DRUGS (12)
  1. SANDIMMUNE [Suspect]
     Indication: RENAL TRANSPLANT
     Dosage: 150 MG, BID
     Route: 048
     Dates: start: 19900918
  2. SANDIMMUNE [Suspect]
     Indication: PANCREAS TRANSPLANT
  3. CIPROFLOXACIN [Concomitant]
     Dosage: 500 MG, BID
  4. TYLENOL [Concomitant]
     Indication: PAIN
     Dosage: 2 DF, QID
  5. ALENDRONATE [Concomitant]
     Dosage: 70 MG, QW
  6. CALCIUM + VITAMIN D [Concomitant]
  7. SENOKOT [Concomitant]
     Dosage: 2 DF, BID
  8. ENOXAPARIN [Concomitant]
     Dosage: 30 MG, BID
     Route: 058
  9. FERROUS SULPHATE [Concomitant]
     Dosage: 325 MG, BID
  10. LISINOPRIL [Concomitant]
     Dosage: 10 MG, QD
     Route: 048
  11. PREDNISONE [Concomitant]
     Dosage: 10 MG, QD
     Route: 048
  12. AZATHIOPRINE [Concomitant]
     Dosage: 100 MG, QD

REACTIONS (7)
  - Femoral neck fracture [Recovered/Resolved]
  - Fall [Unknown]
  - Dysuria [Unknown]
  - Urinary retention [Unknown]
  - Constipation [Unknown]
  - Haemoglobin decreased [Unknown]
  - Blood glucose increased [Unknown]
